FAERS Safety Report 24215117 (Version 4)
Quarter: 2024Q4

REPORT INFORMATION
  Report Type: Spontaneous
  Country: US (occurrence: US)
  Receive Date: 20240816
  Receipt Date: 20241023
  Transmission Date: 20250115
  Serious: Yes (Other)
  Sender: NOVARTIS
  Company Number: US-002147023-NVSC2024US165418

PATIENT
  Age: 35 Year
  Sex: Female
  Weight: 53.968 kg

DRUGS (1)
  1. ENTRESTO [Suspect]
     Active Substance: SACUBITRIL\VALSARTAN
     Indication: Product used for unknown indication
     Dosage: UNK
     Route: 065

REACTIONS (8)
  - Cardiomyopathy [Unknown]
  - Arrhythmia [Unknown]
  - Feeling abnormal [Unknown]
  - Chest pain [Unknown]
  - Fatigue [Recovering/Resolving]
  - Asthenia [Unknown]
  - Gait disturbance [Unknown]
  - Dizziness [Unknown]
